FAERS Safety Report 6285340-6 (Version None)
Quarter: 2009Q3

REPORT INFORMATION
  Report Type: 
  Country: None (occurrence: None)
  Receive Date: 20090727
  Receipt Date: 20090717
  Transmission Date: 20100115
  Serious: Yes (Other)
  Sender: FDA-Public Use
  Company Number: US-GENENTECH-287343

PATIENT

DRUGS (1)
  1. RITUXAN [Suspect]
     Indication: PANCYTOPENIA

REACTIONS (1)
  - ANTIBODY TEST ABNORMAL [None]
